FAERS Safety Report 21311213 (Version 1)
Quarter: 2022Q3

REPORT INFORMATION
  Report Type: Spontaneous
  Country: US (occurrence: None)
  Receive Date: 20220909
  Receipt Date: 20220909
  Transmission Date: 20221027
  Serious: No
  Sender: FDA-Public Use
  Company Number: US-ARIS GLOBAL-202201-0162

PATIENT
  Age: 63 Year
  Sex: Female
  Weight: 126.67 kg

DRUGS (29)
  1. OXERVATE [Suspect]
     Active Substance: CENEGERMIN-BKBJ
     Indication: Neurotrophic keratopathy
     Route: 047
     Dates: start: 20220119, end: 20220315
  2. OXERVATE [Suspect]
     Active Substance: CENEGERMIN-BKBJ
     Route: 047
     Dates: start: 20220314
  3. OXERVATE [Suspect]
     Active Substance: CENEGERMIN-BKBJ
     Route: 047
     Dates: start: 20220427
  4. SYSTANE (HYPROMELLOSE 2910 (4000 MPA.S)) [Concomitant]
     Active Substance: HYPROMELLOSE 2910 (4000 MPA.S)
     Dosage: 0.3% -0.4%
  5. TYRVAYA [Concomitant]
     Active Substance: VARENICLINE TARTRATE
     Dosage: 0.03/SPRAY SPRAY METERED
  6. COMPLEX B-100 [Concomitant]
  7. NYSTATIN [Concomitant]
     Active Substance: NYSTATIN
     Dosage: 100000/G
  8. CRANBERRY [Concomitant]
     Active Substance: CRANBERRY
  9. FISH OIL-VIT D3 [Concomitant]
     Dosage: 120 MG-1000
  10. VITAMINS [Concomitant]
     Active Substance: VITAMINS
  11. PANTOPRAZOLE SODIUM [Concomitant]
     Active Substance: PANTOPRAZOLE SODIUM
  12. NURTEC ODT [Concomitant]
     Active Substance: RIMEGEPANT SULFATE
     Dosage: TABLET RAPDIS
  13. SUCRALFATE [Concomitant]
     Active Substance: SUCRALFATE
  14. TRIAMTERENE-HYDROCHLOROTHIAZID [Concomitant]
     Dosage: 37.5-25 MG
  15. HYDROCHLOROTHIAZIDE\VALSARTAN [Concomitant]
     Active Substance: HYDROCHLOROTHIAZIDE\VALSARTAN
  16. CARBAMAZEPINE [Concomitant]
     Active Substance: CARBAMAZEPINE
     Dosage: SUSTAINED RELEASE TABLET 12 HOURS
  17. GABAPENTIN [Concomitant]
     Active Substance: GABAPENTIN
  18. METHYLPREDNISOLONE [Concomitant]
     Active Substance: METHYLPREDNISOLONE
     Dates: start: 20210713
  19. NITROFURANTOIN [Concomitant]
     Active Substance: NITROFURANTOIN
  20. VALSARTAN [Concomitant]
     Active Substance: VALSARTAN
  21. TRIAMTERENE [Concomitant]
     Active Substance: TRIAMTERENE
     Dosage: 37,5-25 MG
  22. METHYLPREDNISOLONE [Concomitant]
     Active Substance: METHYLPREDNISOLONE
     Dates: start: 20220113
  23. URIBEL [Concomitant]
     Active Substance: HYOSCYAMINE SULFATE\METHENAMINE\METHYLENE BLUE\PHENYL SALICYLATE\SODIUM PHOSPHATE, MONOBASIC, MONOHY
  24. IMVEXXY [Concomitant]
     Active Substance: ESTRADIOL
     Route: 067
  25. VITAMIN D3 [Concomitant]
     Active Substance: CHOLECALCIFEROL
  26. FLUTICASONE PROPIONATE [Concomitant]
     Active Substance: FLUTICASONE PROPIONATE
  27. PANTOPRAZOLE [Concomitant]
     Active Substance: PANTOPRAZOLE
  28. SUCRALFATE [Concomitant]
     Active Substance: SUCRALFATE
  29. CRANBERRY [Concomitant]
     Active Substance: CRANBERRY

REACTIONS (6)
  - Eye pain [Unknown]
  - Dry eye [Unknown]
  - Eye irritation [Unknown]
  - Vision blurred [Unknown]
  - Eye irritation [Unknown]
  - Therapy interrupted [Recovered/Resolved]

NARRATIVE: CASE EVENT DATE: 20211130
